FAERS Safety Report 6431630-3 (Version None)
Quarter: 2009Q4

REPORT INFORMATION
  Report Type: 
  Country: None (occurrence: None)
  Receive Date: 20091103
  Receipt Date: 20091026
  Transmission Date: 20100525
  Serious: Yes (Death)
  Sender: FDA-Public Use
  Company Number: 2009JP006542

PATIENT
  Age: 64 Year
  Sex: Male

DRUGS (5)
  1. FUNGUARD(MICAFUNGIN) INJECTION [Suspect]
     Dosage: 100 MG, UNKNOWN/D, IV DRIP
     Route: 041
     Dates: start: 20090619, end: 20090712
  2. MAXIPIME [Concomitant]
  3. MEROPEN (MEROPENEM TRIHYDRATE) [Concomitant]
  4. AZACTAM [Concomitant]
  5. CLINDAMYCIN HCL [Concomitant]

REACTIONS (4)
  - HAEMOLYTIC ANAEMIA [None]
  - HYPERKALAEMIA [None]
  - PYREXIA [None]
  - RENAL FAILURE ACUTE [None]
